FAERS Safety Report 11365124 (Version 6)
Quarter: 2015Q4

REPORT INFORMATION
  Report Type: Spontaneous
  Country: FR (occurrence: JP)
  Receive Date: 20150811
  Receipt Date: 20151104
  Transmission Date: 20160304
  Serious: Yes (Hospitalization, Other)
  Sender: FDA-Public Use
  Company Number: JP-FRI-1000078792

PATIENT
  Age: 45 Year
  Sex: Female
  Weight: 45 kg

DRUGS (7)
  1. MILNACIPRAN [Suspect]
     Active Substance: MILNACIPRAN
     Indication: DEPRESSION
     Dosage: 200 MG
     Route: 048
     Dates: start: 2013, end: 20150721
  2. MILNACIPRAN [Suspect]
     Active Substance: MILNACIPRAN
     Dosage: 50 MG
     Route: 048
     Dates: start: 20150804
  3. MILNACIPRAN [Suspect]
     Active Substance: MILNACIPRAN
     Dosage: 150 MG
     Route: 048
     Dates: start: 20150722, end: 20150726
  4. MILNACIPRAN [Suspect]
     Active Substance: MILNACIPRAN
     Dosage: 100 MG
     Route: 048
     Dates: start: 20150727, end: 20150803
  5. HALRACK [Concomitant]
     Active Substance: TRIAZOLAM
     Dosage: 0.25 MG
  6. TASMOLIN [Concomitant]
     Active Substance: BIPERIDEN
     Dosage: 1 MG
  7. PAROXETINE [Suspect]
     Active Substance: PAROXETINE\PAROXETINE HYDROCHLORIDE
     Indication: DEPRESSION
     Dosage: 10 MG
     Route: 048
     Dates: end: 20150806

REACTIONS (3)
  - Blood catecholamines increased [Recovered/Resolved]
  - Overdose [Recovered/Resolved]
  - Cardiac failure congestive [Recovered/Resolved]

NARRATIVE: CASE EVENT DATE: 2013
